FAERS Safety Report 9000845 (Version 1)
Quarter: 2013Q1

REPORT INFORMATION
  Report Type: Spontaneous
  Country: US (occurrence: None)
  Receive Date: 20130103
  Receipt Date: 20130103
  Transmission Date: 20140127
  Serious: Yes (Life-Threatening, Hospitalization, Other)
  Sender: FDA-Public Use
  Company Number: None

PATIENT
  Age: 20 Year
  Sex: Female
  Weight: 61.24 kg

DRUGS (2)
  1. KEPPRA [Suspect]
     Route: 042
     Dates: start: 20121213, end: 20121216
  2. LEVETIRACETAM [Concomitant]

REACTIONS (6)
  - Syncope [None]
  - Loss of consciousness [None]
  - Convulsion [None]
  - Respiratory failure [None]
  - Heart rate abnormal [None]
  - Hypotension [None]
